FAERS Safety Report 10091009 (Version 1)
Quarter: 2014Q2

REPORT INFORMATION
  Report Type: Spontaneous
  Country: US (occurrence: US)
  Receive Date: 20140421
  Receipt Date: 20140421
  Transmission Date: 20141212
  Serious: Yes (Other)
  Sender: FDA-Public Use
  Company Number: US-BANPHARM-20142554

PATIENT
  Age: 86 Year
  Sex: Female
  Weight: 68 kg

DRUGS (1)
  1. ALEVE LIQUID GELS 220 MG [Suspect]
     Indication: PAIN
     Dosage: 1 DF, PRN
     Route: 048

REACTIONS (3)
  - Epistaxis [Recovered/Resolved]
  - Epistaxis [Recovered/Resolved]
  - Hypersensitivity [Unknown]
